FAERS Safety Report 8222616-7 (Version None)
Quarter: 2012Q1

REPORT INFORMATION
  Report Type: 
  Country: None (occurrence: None)
  Receive Date: 20120320
  Receipt Date: 20120305
  Transmission Date: 20120608
  Serious: No
  Sender: FDA-Public Use
  Company Number: US-B.I. PHARMACEUTICALS,INC./RIDGEFIELD-2012-BP-04174BP

PATIENT
  Sex: Male

DRUGS (10)
  1. ZOLOFT [Concomitant]
     Indication: DEPRESSION
  2. LOVAZA [Concomitant]
     Indication: SUPPLEMENTATION THERAPY
  3. ZANTAC [Concomitant]
     Indication: DYSPEPSIA
  4. TRAZODONE HCL [Concomitant]
     Indication: DEPRESSION
  5. PRADAXA [Suspect]
     Indication: ATRIAL FIBRILLATION
     Dosage: 300 MG
     Route: 048
     Dates: start: 20110101
  6. DIGOXIN [Concomitant]
     Indication: ATRIAL FIBRILLATION
  7. SPIRONOLACTONE AND HYDROCHLOROTHIAZIDE [Concomitant]
     Indication: HYPERTENSION
  8. ADVAIR DISKUS 100/50 [Concomitant]
     Indication: ASTHMA
  9. WELLBUTRIN [Concomitant]
     Indication: DEPRESSION
  10. ZOCOR [Concomitant]
     Indication: BLOOD CHOLESTEROL INCREASED

REACTIONS (2)
  - DRY SKIN [None]
  - PRURITUS [None]
